FAERS Safety Report 16570720 (Version 1)
Quarter: 2019Q3

REPORT INFORMATION
  Report Type: Spontaneous
  Country: DK (occurrence: DK)
  Receive Date: 20190715
  Receipt Date: 20190715
  Transmission Date: 20191004
  Serious: Yes (Other)
  Sender: FDA-Public Use
  Company Number: DK-TEVA-2019-DK-1076508

PATIENT
  Age: 56 Year
  Sex: Female
  Weight: 62 kg

DRUGS (1)
  1. LOSARTANKALIUM ^TEVA^ [Suspect]
     Active Substance: LOSARTAN
     Indication: HYPERTENSION
     Dosage: DOSE: 1X50MG AND 1X100MG HAVE CHANGED SLIGHTLY, STRENGTH: 50 MG AND 100MG
     Route: 048
     Dates: start: 20180418, end: 20190410

REACTIONS (5)
  - Tinnitus [Not Recovered/Not Resolved]
  - Haemorrhage subepidermal [Not Recovered/Not Resolved]
  - Oral pain [Not Recovered/Not Resolved]
  - Swollen tongue [Not Recovered/Not Resolved]
  - Dyspnoea at rest [Not Recovered/Not Resolved]

NARRATIVE: CASE EVENT DATE: 20180901
